FAERS Safety Report 7877207-4 (Version None)
Quarter: 2011Q4

REPORT INFORMATION
  Report Type: 
  Country: None (occurrence: None)
  Receive Date: 20111031
  Receipt Date: 20111025
  Transmission Date: 20120403
  Serious: Yes (Life-Threatening)
  Sender: FDA-Public Use
  Company Number: US-ROCHE-1004165

PATIENT
  Age: 50 Year
  Sex: Male
  Weight: 77.3 kg

DRUGS (2)
  1. XELODA [Suspect]
     Indication: NEOPLASM MALIGNANT
     Route: 048
     Dates: start: 20110721, end: 20111010
  2. GDC-0980 (PI3K/MTOR INHIBITOR) [Suspect]
     Indication: NEOPLASM MALIGNANT
     Route: 048
     Dates: start: 20110722, end: 20111010

REACTIONS (1)
  - LARGE INTESTINE PERFORATION [None]
